FAERS Safety Report 9693099 (Version 1)
Quarter: 2013Q4

REPORT INFORMATION
  Report Type: Spontaneous
  Country: US (occurrence: None)
  Receive Date: 20131115
  Receipt Date: 20131115
  Transmission Date: 20140711
  Serious: No
  Sender: FDA-Public Use
  Company Number: None

PATIENT
  Age: 32 Year
  Sex: Male

DRUGS (3)
  1. CEFAZOLIN [Suspect]
     Dates: start: 20111208, end: 20111209
  2. CEFTRIAXONE [Suspect]
     Dates: start: 20111219, end: 20120107
  3. LEVOQUIN [Suspect]
     Dates: start: 20120102, end: 20120106

REACTIONS (1)
  - Drug-induced liver injury [None]
